FAERS Safety Report 17062143 (Version 1)
Quarter: 2019Q4

REPORT INFORMATION
  Report Type: Spontaneous
  Country: US (occurrence: US)
  Receive Date: 20191122
  Receipt Date: 20191122
  Transmission Date: 20200122
  Serious: Yes (Life-Threatening, Hospitalization, Other)
  Sender: FDA-Public Use
  Company Number: US-DRREDDYS-USA/USA/19/0116329

PATIENT
  Sex: Male

DRUGS (16)
  1. AMIODARONE HYDROCHLORIDE. [Suspect]
     Active Substance: AMIODARONE HYDROCHLORIDE
     Indication: PULMONARY VALVE STENOSIS
  2. PROCAINAMIDE [Suspect]
     Active Substance: PROCAINAMIDE HYDROCHLORIDE
     Indication: RIGHT VENTRICULAR DYSFUNCTION
  3. PROCAINAMIDE [Suspect]
     Active Substance: PROCAINAMIDE HYDROCHLORIDE
     Indication: SINUS TACHYCARDIA
  4. ESMOLOL [Suspect]
     Active Substance: ESMOLOL HYDROCHLORIDE
     Indication: RIGHT VENTRICULAR DYSFUNCTION
  5. AMIODARONE HYDROCHLORIDE. [Suspect]
     Active Substance: AMIODARONE HYDROCHLORIDE
     Indication: RIGHT VENTRICULAR DYSFUNCTION
  6. ESMOLOL [Suspect]
     Active Substance: ESMOLOL HYDROCHLORIDE
     Indication: SINUS TACHYCARDIA
  7. PROCAINAMIDE [Suspect]
     Active Substance: PROCAINAMIDE HYDROCHLORIDE
     Indication: PULMONARY VALVE STENOSIS
  8. LIDOCAINE. [Suspect]
     Active Substance: LIDOCAINE
     Indication: VENTRICULAR TACHYCARDIA
  9. AMIODARONE HYDROCHLORIDE. [Suspect]
     Active Substance: AMIODARONE HYDROCHLORIDE
     Indication: VENTRICULAR TACHYCARDIA
  10. PROCAINAMIDE [Suspect]
     Active Substance: PROCAINAMIDE HYDROCHLORIDE
     Indication: VENTRICULAR TACHYCARDIA
  11. LIDOCAINE. [Suspect]
     Active Substance: LIDOCAINE
     Indication: RIGHT VENTRICULAR DYSFUNCTION
  12. ESMOLOL [Suspect]
     Active Substance: ESMOLOL HYDROCHLORIDE
     Indication: VENTRICULAR TACHYCARDIA
  13. ESMOLOL [Suspect]
     Active Substance: ESMOLOL HYDROCHLORIDE
     Indication: PULMONARY VALVE STENOSIS
  14. AMIODARONE HYDROCHLORIDE. [Suspect]
     Active Substance: AMIODARONE HYDROCHLORIDE
     Indication: SINUS TACHYCARDIA
     Dosage: DOSE INCREMENTALLY ESCALATED TO A MAXIMUM OF 20 MCG/KG/MINUTE
  15. LIDOCAINE. [Suspect]
     Active Substance: LIDOCAINE
     Indication: PULMONARY VALVE STENOSIS
  16. LIDOCAINE. [Suspect]
     Active Substance: LIDOCAINE
     Indication: SINUS TACHYCARDIA

REACTIONS (1)
  - Drug ineffective [Recovered/Resolved]
